FAERS Safety Report 21625804 (Version 1)
Quarter: 2022Q4

REPORT INFORMATION
  Report Type: Spontaneous
  Country: US (occurrence: US)
  Receive Date: 20221122
  Receipt Date: 20221122
  Transmission Date: 20230113
  Serious: No
  Sender: FDA-Public Use
  Company Number: US-INSMED, INC.-2021-10170-US

PATIENT
  Sex: Male

DRUGS (1)
  1. ARIKAYCE [Suspect]
     Active Substance: AMIKACIN
     Indication: Product used for unknown indication
     Dosage: UNK
     Route: 055
     Dates: start: 20210915

REACTIONS (5)
  - Incorrect product administration duration [Unknown]
  - Device issue [Unknown]
  - Accidental underdose [Unknown]
  - Device leakage [Unknown]
  - Product dose omission issue [Unknown]
